FAERS Safety Report 23982997 (Version 1)
Quarter: 2024Q2

REPORT INFORMATION
  Report Type: Spontaneous
  Country: FR (occurrence: FR)
  Receive Date: 20240617
  Receipt Date: 20240617
  Transmission Date: 20240716
  Serious: Yes (Hospitalization)
  Sender: FDA-Public Use
  Company Number: None

PATIENT
  Age: 52 Year
  Sex: Female
  Weight: 76 kg

DRUGS (3)
  1. PRISTINAMYCIN [Concomitant]
     Active Substance: PRISTINAMYCIN
     Indication: Infection
     Dosage: 3 G/J
     Route: 048
     Dates: start: 20240224, end: 20240229
  2. AMOXICILLIN [Interacting]
     Active Substance: AMOXICILLIN
     Indication: Infection
     Dosage: 3 G/J
     Route: 048
     Dates: start: 20240224, end: 20240229
  3. METHOTREXATE [Interacting]
     Active Substance: METHOTREXATE
     Indication: Granulomatosis with polyangiitis
     Dosage: 20 MG/SEMAINE
     Route: 048
     Dates: start: 20200601, end: 20240229

REACTIONS (2)
  - Microcytic anaemia [Recovering/Resolving]
  - Thrombocytopenia [Recovering/Resolving]

NARRATIVE: CASE EVENT DATE: 20240307
